FAERS Safety Report 5967535-1 (Version None)
Quarter: 2008Q4

REPORT INFORMATION
  Report Type: 
  Country: None (occurrence: None)
  Receive Date: 20081125
  Receipt Date: 20081117
  Transmission Date: 20090506
  Serious: Yes (Other)
  Sender: FDA-Public Use
  Company Number: FR-PFIZER INC-2008097363

PATIENT
  Age: 62 Year
  Sex: Male

DRUGS (4)
  1. LYRICA [Suspect]
  2. PARACETAMOL [Concomitant]
  3. TRAMADOL HYDROCHLORIDE [Concomitant]
  4. TIANEPTINE [Concomitant]

REACTIONS (2)
  - COMA [None]
  - EPILEPSY [None]
